FAERS Safety Report 7391755-5 (Version None)
Quarter: 2011Q2

REPORT INFORMATION
  Report Type: 
  Country: None (occurrence: None)
  Receive Date: 20110404
  Receipt Date: 20110330
  Transmission Date: 20111010
  Serious: Yes (Other)
  Sender: FDA-Public Use
  Company Number: BR-ROCHE-702055

PATIENT
  Sex: Female
  Weight: 52 kg

DRUGS (8)
  1. SIMVASTATIN [Concomitant]
     Dosage: AT NIGHT
     Route: 048
     Dates: start: 20070101
  2. ASPIRIN [Concomitant]
     Indication: ANTICOAGULANT THERAPY
     Route: 048
  3. ALENDRONATE SODIUM [Concomitant]
     Dates: start: 20070101
  4. CALCIUM [Concomitant]
     Dosage: AT NIGHT; CHELATED CALCIUM
     Route: 048
     Dates: start: 20070101
  5. BONIVA [Suspect]
     Indication: OSTEOPOROSIS
     Dosage: FREQUENCY; ONLY ONCE
     Route: 048
     Dates: start: 20100201, end: 20100201
  6. METFORMIN HCL [Concomitant]
     Route: 048
     Dates: start: 20070101
  7. CALCIUM [Concomitant]
     Indication: OSTEOPOROSIS
     Dosage: FREQUENCY: ONCE A DAY.
  8. OMEPRAZOLE [Concomitant]
     Route: 048
     Dates: start: 20091001

REACTIONS (10)
  - ABDOMINAL PAIN [None]
  - VOMITING [None]
  - HEADACHE [None]
  - GASTRITIS EROSIVE [None]
  - GASTRIC POLYPS [None]
  - MEDICATION ERROR [None]
  - ABDOMINAL DISTENSION [None]
  - NAUSEA [None]
  - GAIT DISTURBANCE [None]
  - ASTHENIA [None]
